FAERS Safety Report 5569120-2 (Version None)
Quarter: 2007Q4

REPORT INFORMATION
  Report Type: 
  Country: None (occurrence: None)
  Receive Date: 20071220
  Receipt Date: 20070723
  Transmission Date: 20080405
  Serious: No
  Sender: FDA-Public Use
  Company Number: A0665784A

PATIENT
  Age: 64 Year
  Sex: Male

DRUGS (2)
  1. AVODART [Suspect]
     Indication: BENIGN PROSTATIC HYPERPLASIA
     Dosage: 1CAP PER DAY
     Route: 048
     Dates: start: 20060501, end: 20070515
  2. FLOMAX [Concomitant]

REACTIONS (3)
  - GYNAECOMASTIA [None]
  - MUSCULOSKELETAL CHEST PAIN [None]
  - SWELLING [None]
